FAERS Safety Report 14137739 (Version 1)
Quarter: 2017Q4

REPORT INFORMATION
  Report Type: Spontaneous
  Country: ME (occurrence: ME)
  Receive Date: 20171027
  Receipt Date: 20171027
  Transmission Date: 20180321
  Serious: Yes (Death, Hospitalization, Other)
  Sender: FDA-Public Use
  Company Number: ME-ASTELLAS-2017US043523

PATIENT
  Sex: Male

DRUGS (2)
  1. TACROLIMUS. [Suspect]
     Active Substance: TACROLIMUS
     Indication: RENAL TRANSPLANT
     Dosage: UNK, UNKNOWN FREQ.
     Route: 065
  2. MYCOPHENOLATE MOFETIL. [Concomitant]
     Active Substance: MYCOPHENOLATE MOFETIL
     Indication: RENAL TRANSPLANT
     Dosage: UNK UNK, UNKNOWN FREQ.
     Route: 065

REACTIONS (9)
  - Cirrhosis alcoholic [Unknown]
  - End stage renal disease [Unknown]
  - Acute kidney injury [Unknown]
  - Coagulopathy [Unknown]
  - Thrombocytopenia [Unknown]
  - Haemorrhagic disorder [Unknown]
  - Gastrointestinal haemorrhage [Fatal]
  - Complications of transplanted kidney [Unknown]
  - Hepatorenal syndrome [Unknown]
